FAERS Safety Report 16589413 (Version 9)
Quarter: 2022Q4

REPORT INFORMATION
  Report Type: Report from Study
  Country: DE (occurrence: None)
  Receive Date: 20190718
  Receipt Date: 20221121
  Transmission Date: 20230113
  Serious: Yes (Hospitalization)
  Sender: FDA-Public Use
  Company Number: DE-ROCHE-2343272

PATIENT
  Age: 67 Year
  Sex: Male
  Weight: 75 kg

DRUGS (13)
  1. ATEZOLIZUMAB [Suspect]
     Active Substance: ATEZOLIZUMAB
     Indication: Malignant neoplasm of unknown primary site
     Route: 041
     Dates: start: 20190614
  2. CARBOPLATIN [Suspect]
     Active Substance: CARBOPLATIN
     Indication: Malignant neoplasm of unknown primary site
     Dosage: DATE OF LAST DOSE OF INDUCTION STUDY DRUG 1 (CARBOPLATIN) PRIOR TO SAE/AESI ONSET: 27/MAY/2019 (DOSE
     Route: 042
     Dates: start: 20190527
  3. GEMCITABINE [Suspect]
     Active Substance: GEMCITABINE
     Indication: Malignant neoplasm of unknown primary site
     Dosage: TWICE EVERY THREE WEEKS FOR UP TO 6 CYCLES
     Route: 042
     Dates: start: 20190614
  4. PACLITAXEL [Suspect]
     Active Substance: PACLITAXEL
     Indication: Malignant neoplasm of unknown primary site
     Dosage: DATE OF LAST DOSE OF INDUCTION STUDY DRUG 2 (PACLITAXEL) PRIOR TO SAE/AESI ONSET: 27/MAY/2019 (DOSE
     Route: 042
     Dates: start: 20190527
  5. CISPLATIN [Suspect]
     Active Substance: CISPLATIN
     Indication: Malignant neoplasm of unknown primary site
     Route: 042
     Dates: start: 20190614
  6. NOVALGIN (METAMIZOLE SODIUM) [Concomitant]
     Active Substance: METAMIZOLE SODIUM
     Route: 048
  7. PANTOZOL [Concomitant]
     Active Substance: PANTOPRAZOLE SODIUM
     Route: 048
     Dates: start: 20190310
  8. CETIRIZINE [Concomitant]
     Active Substance: CETIRIZINE HYDROCHLORIDE
     Route: 048
  9. CEFPODOXIME [Concomitant]
     Active Substance: CEFPODOXIME
     Indication: Hydronephrosis
     Route: 048
     Dates: start: 20191011, end: 20191019
  10. PIPERACILLIN SODIUM\TAZOBACTAM SODIUM [Concomitant]
     Active Substance: PIPERACILLIN SODIUM\TAZOBACTAM SODIUM
     Indication: Urosepsis
     Dosage: 4/0.5 G
     Route: 042
     Dates: start: 20190721, end: 20190727
  11. PIPERACILLIN SODIUM\TAZOBACTAM SODIUM [Concomitant]
     Active Substance: PIPERACILLIN SODIUM\TAZOBACTAM SODIUM
     Indication: Device related infection
  12. MEROPENEM [Concomitant]
     Active Substance: MEROPENEM
     Indication: Device related infection
     Route: 042
     Dates: start: 20191102, end: 20191113
  13. METAMIZOL [Concomitant]
     Active Substance: METAMIZOLE SODIUM
     Route: 048
     Dates: start: 20190620, end: 20190705

REACTIONS (1)
  - Pancytopenia [Recovered/Resolved]

NARRATIVE: CASE EVENT DATE: 20190619
